FAERS Safety Report 9737246 (Version 1)
Quarter: 2013Q4

REPORT INFORMATION
  Report Type: Spontaneous
  Country: US (occurrence: US)
  Receive Date: 20131206
  Receipt Date: 20131206
  Transmission Date: 20140711
  Serious: Yes (Other)
  Sender: FDA-Public Use
  Company Number: PHHY2013US139534

PATIENT
  Age: 20 Year
  Sex: Female

DRUGS (1)
  1. AMIODARONE [Suspect]
     Indication: ELECTROCARDIOGRAM ST SEGMENT DEPRESSION

REACTIONS (3)
  - Clostridium difficile colitis [Unknown]
  - Pulmonary calcification [Unknown]
  - Toxicity to various agents [Unknown]
